FAERS Safety Report 6253417-7 (Version None)
Quarter: 2009Q3

REPORT INFORMATION
  Report Type: 
  Country: None (occurrence: None)
  Receive Date: 20090701
  Receipt Date: 20090626
  Transmission Date: 20100115
  Serious: Yes (Hospitalization)
  Sender: FDA-Public Use
  Company Number: DE-WYE-G03932309

PATIENT
  Age: 87 Year
  Sex: Female

DRUGS (20)
  1. VENLAFAXINE HCL [Suspect]
     Indication: DEPRESSION
     Route: 048
     Dates: start: 20090127, end: 20090203
  2. VENLAFAXINE HCL [Suspect]
     Route: 048
     Dates: start: 20090204, end: 20090227
  3. VENLAFAXINE HCL [Suspect]
     Route: 048
     Dates: start: 20090228
  4. TAVOR [Concomitant]
     Route: 048
     Dates: start: 20090106, end: 20090109
  5. TAVOR [Concomitant]
     Route: 048
     Dates: start: 20090110, end: 20090114
  6. TAVOR [Concomitant]
     Route: 048
     Dates: start: 20090115, end: 20090117
  7. TAVOR [Concomitant]
     Route: 048
     Dates: start: 20090118, end: 20090213
  8. TAVOR [Concomitant]
     Route: 048
     Dates: start: 20090214, end: 20090222
  9. TAVOR [Concomitant]
     Route: 048
     Dates: start: 20090223, end: 20090301
  10. TAVOR [Concomitant]
     Dosage: UNKNOWN
     Route: 042
     Dates: start: 20090301, end: 20090301
  11. TAVOR [Concomitant]
     Route: 048
     Dates: start: 20090301
  12. ZYPREXA [Suspect]
     Route: 048
     Dates: start: 20090223
  13. TORSEMIDE [Concomitant]
     Dosage: 10 MG PER DAY FOR A LONGER PERIOD OF TIME, CONTINUES
     Route: 048
  14. MARCUMAR [Concomitant]
     Dosage: DOSE REGIMEN ADJUSTED TO QUICK VALUE, ADMINISTRATION FOR ALONGER PERIOD OF TIME, CONTINUES
     Route: 048
  15. DIGITOXIN TAB [Concomitant]
     Dosage: 0.05 MG PER DAY FOR A LONGER PERIOD OF TIME, CONTINUES
     Route: 048
  16. CARVEDILOL [Concomitant]
     Dosage: 50 MG PER DAY FOR A LONGER PERIOD OF TIME, CONTINUES
     Route: 048
  17. SPIRONOLACTONE [Concomitant]
     Dosage: 25 MG PER DAY FOR A LONGER PERIOD OF TIME, CONTINUES
     Route: 048
  18. PANTOZOL [Concomitant]
     Dosage: 20 MG PER DAY FOR A LONGER PERIOD OF TIME, CONTINUES
     Route: 048
  19. NORTRIPTYLINE HCL [Suspect]
     Route: 048
     Dates: start: 20090228, end: 20090302
  20. LEVOTHYROXINE SODIUM [Concomitant]
     Dosage: 100 ?G PER DAY FOR A LONGER PERIOD OF TIME, CONTINUES
     Route: 048

REACTIONS (3)
  - DELIRIUM [None]
  - DELUSIONAL DISORDER, PERSECUTORY TYPE [None]
  - DRUG INTERACTION [None]
